FAERS Safety Report 14938359 (Version 1)
Quarter: 2018Q2

REPORT INFORMATION
  Report Type: Spontaneous
  Country: US (occurrence: US)
  Receive Date: 20180525
  Receipt Date: 20180525
  Transmission Date: 20180711
  Serious: No
  Sender: FDA-Public Use
  Company Number: US-LUNDBECK-DKLU2049120

PATIENT
  Age: 64 Year
  Sex: Female

DRUGS (2)
  1. NORTHERA [Suspect]
     Active Substance: DROXIDOPA
     Indication: DIZZINESS
     Route: 048
     Dates: start: 20160515
  2. NORTHERA [Suspect]
     Active Substance: DROXIDOPA
     Indication: SYNCOPE

REACTIONS (1)
  - Blood urine present [Unknown]

NARRATIVE: CASE EVENT DATE: 20180505
